FAERS Safety Report 5726030-5 (Version None)
Quarter: 2008Q2

REPORT INFORMATION
  Report Type: 
  Country: None (occurrence: None)
  Receive Date: 20080501
  Receipt Date: 20080501
  Transmission Date: 20081010
  Serious: Yes (Hospitalization)
  Sender: FDA-Public Use
  Company Number: None

PATIENT
  Sex: Male
  Weight: 83 kg

DRUGS (5)
  1. VINCRISTINE SULFATE [Suspect]
     Dosage: 2MG
  2. CYCLOPHOSPHAMIDE [Suspect]
     Dosage: 1500 MG
  3. DOXIL [Suspect]
     Dosage: 80 MG
  4. PREDNISONE TAB [Concomitant]
     Dosage: 500 MG
  5. RITUXIMAB (MOAB C2B8 ANTI CD20, CHIMERIC) [Concomitant]
     Dosage: 750 MG

REACTIONS (2)
  - INTESTINAL DILATATION [None]
  - SMALL INTESTINAL OBSTRUCTION [None]
